FAERS Safety Report 8426203-7 (Version None)
Quarter: 2012Q2

REPORT INFORMATION
  Report Type: 
  Country: None (occurrence: None)
  Receive Date: 20120611
  Receipt Date: 20120328
  Transmission Date: 20120825
  Serious: No
  Sender: FDA-Public Use
  Company Number: US-MYLANLABS-2012S1003236

PATIENT
  Age: 32 Year
  Sex: Female

DRUGS (5)
  1. ZOLOFT [Concomitant]
     Indication: ANXIETY
     Route: 048
     Dates: start: 20100101
  2. NECON /00013701/ [Concomitant]
  3. CYCLOBENZAPRINE HCL [Suspect]
     Indication: MUSCLE SPASMS
     Route: 048
     Dates: start: 20120205, end: 20120206
  4. VITAMIN [Concomitant]
  5. NABUMETONE [Suspect]
     Indication: ANTIINFLAMMATORY THERAPY
     Route: 048
     Dates: start: 20120205, end: 20120206

REACTIONS (3)
  - HEMIPARESIS [None]
  - PARAESTHESIA [None]
  - EYELID OEDEMA [None]
